FAERS Safety Report 4494413-X (Version None)
Quarter: 2004Q4

REPORT INFORMATION
  Report Type: 
  Country: None (occurrence: None)
  Receive Date: 20041104
  Receipt Date: 20041104
  Transmission Date: 20050328
  Serious: Yes (Hospitalization)
  Sender: FDA-Public Use
  Company Number: None

PATIENT
  Age: 80 Year
  Sex: Male
  Weight: 64.4108 kg

DRUGS (10)
  1. WARFARIN [Suspect]
     Indication: ATRIAL FIBRILLATION
     Dosage: 5 MG PO DAILY
     Route: 048
  2. BECLOVENT [Concomitant]
  3. ISORDIL [Concomitant]
  4. DILTIAZEM HCL [Concomitant]
  5. LASIX [Concomitant]
  6. LOVASTATIN [Concomitant]
  7. LOPRESSOR [Concomitant]
  8. VICODIN [Concomitant]
  9. ZESTRIL [Concomitant]
  10. ALBUTEROL [Concomitant]

REACTIONS (3)
  - CONFUSIONAL STATE [None]
  - DYSPNOEA [None]
  - INTERNATIONAL NORMALISED RATIO INCREASED [None]
